FAERS Safety Report 5277026-1 (Version None)
Quarter: 2007Q1

REPORT INFORMATION
  Report Type: 
  Country: None (occurrence: None)
  Receive Date: 20070327
  Receipt Date: 20070205
  Transmission Date: 20070707
  Serious: No
  Sender: FDA-Public Use
  Company Number: US-BRISTOL-MYERS SQUIBB COMPANY-13667308

PATIENT
  Age: 62 Year
  Sex: Male
  Weight: 84 kg

DRUGS (10)
  1. ORENCIA [Suspect]
     Indication: RHEUMATOID ARTHRITIS
     Route: 042
     Dates: start: 20060525
  2. LIPITOR [Concomitant]
  3. METHIMAZOLE [Concomitant]
  4. TOPROL-XL [Concomitant]
  5. PROTONIX [Concomitant]
  6. WARFARIN SODIUM [Concomitant]
  7. FLECAINIDE ACETATE [Concomitant]
  8. FOLIC ACID [Concomitant]
  9. HYDROCODONE [Concomitant]
  10. METHOTREXATE [Concomitant]

REACTIONS (1)
  - HYPERHIDROSIS [None]
